FAERS Safety Report 13709061 (Version 23)
Quarter: 2021Q4

REPORT INFORMATION
  Report Type: Report from Study
  Country: NL (occurrence: NL)
  Receive Date: 20170701
  Receipt Date: 20211217
  Transmission Date: 20220303
  Serious: Yes (Other)
  Sender: FDA-Public Use
  Company Number: NL-ABBVIE-16K-114-1806540-00

PATIENT
  Sex: Male
  Weight: 81 kg

DRUGS (18)
  1. CARBIDOPA\LEVODOPA [Suspect]
     Active Substance: CARBIDOPA\LEVODOPA
     Indication: Parkinson^s disease
     Dosage: MD: 9.5, CD: 5, ED: 2, ND: 2.7, ED; NIGHT PUMP:1
     Route: 050
     Dates: start: 20110711
  2. CARBIDOPA\LEVODOPA [Suspect]
     Active Substance: CARBIDOPA\LEVODOPA
     Dosage: MORNING DOSE WAS INCREASED WITH 1ML
     Route: 050
  3. CARBIDOPA\LEVODOPA [Suspect]
     Active Substance: CARBIDOPA\LEVODOPA
     Dosage: MORNING DOSE WAS REDUCED WITH 0.5 ML TO 9.5 ML.
     Route: 050
  4. CARBIDOPA\LEVODOPA [Suspect]
     Active Substance: CARBIDOPA\LEVODOPA
     Dosage: MD: 9.5  CD: 5.3 EXTRA DOSE: 2.5 NIGHT PUMP: CD: 2.5 EXTRA DOSE: 1
     Route: 050
  5. CARBIDOPA\LEVODOPA [Suspect]
     Active Substance: CARBIDOPA\LEVODOPA
     Dosage: ED INCREASED FROM 2.5 ML TO 3.5 ML.
     Route: 050
  6. CARBIDOPA\LEVODOPA [Suspect]
     Active Substance: CARBIDOPA\LEVODOPA
     Dosage: MD: 8.5, CD: 5.3, ED: 2.0, CND: 2.5, END: 1.0?24 HOUR ADMINISTRATION
     Route: 050
  7. CARBIDOPA\LEVODOPA [Suspect]
     Active Substance: CARBIDOPA\LEVODOPA
     Dosage: MD  7.5 ML; CD 5.3 ML/HR; ED 2.0 ML, ND: CD 2.5 ML/HR; ED 1.0 ML
     Route: 050
  8. CARBIDOPA\LEVODOPA [Suspect]
     Active Substance: CARBIDOPA\LEVODOPA
     Dosage: MD: 7.5, CD: 5.3, ED: 2.0, CND: 2.2, END: 1.0; 24 HOUR ADMINISTRATION
     Route: 050
  9. CARBIDOPA\LEVODOPA [Suspect]
     Active Substance: CARBIDOPA\LEVODOPA
     Dosage: MD 6.5 CD 5.3 ED 3.0 CDN 2.3 EDN 3.0
     Route: 050
  10. CARBIDOPA\LEVODOPA [Suspect]
     Active Substance: CARBIDOPA\LEVODOPA
     Dosage: CND INCREASED TO 2.5, END: 3.0
     Route: 050
  11. CARBIDOPA\LEVODOPA [Suspect]
     Active Substance: CARBIDOPA\LEVODOPA
     Dosage: MD 6.5 ML CDD 5.3 ML/H EDD 3.0 ML CDN 2.3 ML/H EDN 3.0 ML?REMAINS AT 24 HOURS
     Route: 050
  12. CARBIDOPA\LEVODOPA [Suspect]
     Active Substance: CARBIDOPA\LEVODOPA
     Dosage: MD: 6.5 ML CD: 5.3 ML/H EDD: 3.0 ML CDN: 2.3 ML/H EDN: 3.0 ML?REMAINED AT 24 HOURS
     Route: 050
  13. EXELON [Concomitant]
     Active Substance: RIVASTIGMINE TARTRATE
     Indication: Memory impairment
     Route: 065
     Dates: start: 20200601
  14. CLONAZEPAM [Concomitant]
     Active Substance: CLONAZEPAM
     Indication: Product used for unknown indication
  15. TEMAZEPAM [Concomitant]
     Active Substance: TEMAZEPAM
     Indication: Sleep disorder therapy
     Dates: end: 20200318
  16. BACLOFEN [Concomitant]
     Active Substance: BACLOFEN
     Indication: Product used for unknown indication
  17. RITUXIMAB [Concomitant]
     Active Substance: RITUXIMAB
     Indication: Polyneuropathy
     Dates: start: 2020
  18. RITUXIMAB [Concomitant]
     Active Substance: RITUXIMAB
     Indication: Immunosuppressant drug therapy

REACTIONS (63)
  - Waldenstrom^s macroglobulinaemia [Not Recovered/Not Resolved]
  - Nephrectomy [Not Recovered/Not Resolved]
  - Muscle rigidity [Not Recovered/Not Resolved]
  - Somnambulism [Not Recovered/Not Resolved]
  - Neuralgia [Recovering/Resolving]
  - Cognitive disorder [Not Recovered/Not Resolved]
  - Irritability [Not Recovered/Not Resolved]
  - Daydreaming [Not Recovered/Not Resolved]
  - Restlessness [Recovered/Resolved]
  - Flat affect [Unknown]
  - Myalgia [Not Recovered/Not Resolved]
  - Hallucination, visual [Recovered/Resolved]
  - Memory impairment [Not Recovered/Not Resolved]
  - Feeling abnormal [Not Recovered/Not Resolved]
  - Memory impairment [Recovered/Resolved]
  - Disturbance in attention [Recovering/Resolving]
  - Tremor [Not Recovered/Not Resolved]
  - Fatigue [Not Recovered/Not Resolved]
  - Muscle spasms [Not Recovered/Not Resolved]
  - Malaise [Not Recovered/Not Resolved]
  - Weight decreased [Recovered/Resolved]
  - Weight increased [Recovered/Resolved]
  - Decreased appetite [Recovered/Resolved]
  - Abnormal dreams [Not Recovered/Not Resolved]
  - Neuropathy peripheral [Recovering/Resolving]
  - Unevaluable event [Not Recovered/Not Resolved]
  - Agitation [Not Recovered/Not Resolved]
  - Constipation [Recovered/Resolved]
  - Anxiety [Recovered/Resolved]
  - Hallucination [Recovered/Resolved]
  - Bradykinesia [Not Recovered/Not Resolved]
  - Dyskinesia [Recovered/Resolved]
  - Freezing phenomenon [Not Recovered/Not Resolved]
  - On and off phenomenon [Not Recovered/Not Resolved]
  - Stoma site discharge [Recovered/Resolved]
  - Stoma site erythema [Not Recovered/Not Resolved]
  - Stoma site discharge [Recovered/Resolved]
  - Stoma site erythema [Recovered/Resolved]
  - Stoma site reaction [Recovered/Resolved]
  - Stoma site reaction [Recovered/Resolved]
  - Therapeutic product effect incomplete [Recovered/Resolved]
  - Drug ineffective [Not Recovered/Not Resolved]
  - Device issue [Unknown]
  - Unevaluable event [Not Recovered/Not Resolved]
  - Hallucination [Not Recovered/Not Resolved]
  - Sleep disorder [Recovering/Resolving]
  - Medical device site dryness [Unknown]
  - Infrequent bowel movements [Not Recovered/Not Resolved]
  - Device difficult to use [Not Recovered/Not Resolved]
  - Medical device site pain [Not Recovered/Not Resolved]
  - Neuralgia [Not Recovered/Not Resolved]
  - Dyskinesia [Not Recovered/Not Resolved]
  - Irritability [Not Recovered/Not Resolved]
  - Limb discomfort [Not Recovered/Not Resolved]
  - Loss of personal independence in daily activities [Not Recovered/Not Resolved]
  - Amnesia [Not Recovered/Not Resolved]
  - Impetigo [Not Recovered/Not Resolved]
  - Fungal infection [Not Recovered/Not Resolved]
  - Stomatitis [Not Recovered/Not Resolved]
  - Stress [Not Recovered/Not Resolved]
  - Poor quality sleep [Not Recovered/Not Resolved]
  - Hypoaesthesia [Not Recovered/Not Resolved]
  - Stoma site irritation [Not Recovered/Not Resolved]

NARRATIVE: CASE EVENT DATE: 20170101
